FAERS Safety Report 21991785 (Version 1)
Quarter: 2023Q1

REPORT INFORMATION
  Report Type: Spontaneous
  Country: US (occurrence: US)
  Receive Date: 20230214
  Receipt Date: 20230214
  Transmission Date: 20230418
  Serious: No
  Sender: FDA-Public Use
  Company Number: US-TAKEDA-2023TUS014566

PATIENT

DRUGS (1)
  1. VYVANSE [Suspect]
     Active Substance: LISDEXAMFETAMINE DIMESYLATE
     Indication: Attention deficit hyperactivity disorder
     Dosage: UNK
     Route: 065
     Dates: start: 2018

REACTIONS (4)
  - Gastrooesophageal reflux disease [Unknown]
  - Weight increased [Unknown]
  - Therapeutic reaction time decreased [Unknown]
  - Inappropriate schedule of product administration [Unknown]
